FAERS Safety Report 5313715-8 (Version None)
Quarter: 2007Q2

REPORT INFORMATION
  Report Type: 
  Country: None (occurrence: None)
  Receive Date: 20070425
  Receipt Date: 20070410
  Transmission Date: 20071010
  Serious: Yes (Hospitalization)
  Sender: FDA-Public Use
  Company Number: 2007RR-06824

PATIENT
  Age: 62 Year
  Sex: Female

DRUGS (17)
  1. CIPROFLOXACIN [Suspect]
     Indication: PROPHYLAXIS
     Dosage: 500 MG, BID, ORAL
     Route: 048
     Dates: start: 20070213, end: 20070214
  2. CIPROFLOXACIN [Suspect]
     Indication: PROPHYLAXIS
     Dosage: 500 MG, BID, ORAL
     Route: 048
     Dates: start: 20070117, end: 20070125
  3. ACYCLOVIR [Concomitant]
  4. ALLOPURINOL [Concomitant]
  5. CYCLOPHOSPHAMIDE [Concomitant]
  6. DOXORUBICIN HCL [Concomitant]
  7. ESTRADIOL [Concomitant]
  8. FLUCONAZOLE [Concomitant]
  9. GLYCERYL TRINITRATE [Concomitant]
  10. GRANISETRON [Concomitant]
  11. NORETHINDRONE ACETATE [Concomitant]
  12. OMEPRAZOLE [Concomitant]
  13. PREDNISOLONE [Concomitant]
  14. QUININE SULPHATE (QUININE) [Concomitant]
  15. RANITIDINE [Concomitant]
  16. RITUXIMAB [Concomitant]
  17. VINCRISTINE [Concomitant]

REACTIONS (4)
  - HYPOTENSION [None]
  - RASH ERYTHEMATOUS [None]
  - RASH MACULO-PAPULAR [None]
  - TACHYCARDIA [None]
